FAERS Safety Report 4759463-4 (Version None)
Quarter: 2005Q3

REPORT INFORMATION
  Report Type: 
  Country: None (occurrence: None)
  Receive Date: 20050831
  Receipt Date: 20050817
  Transmission Date: 20060218
  Serious: Yes (Hospitalization)
  Sender: FDA-Public Use
  Company Number: 205237

PATIENT
  Age: 52 Year
  Sex: Female
  Weight: 48.5349 kg

DRUGS (7)
  1. AVONEX [Suspect]
     Indication: MULTIPLE SCLEROSIS
     Dosage: 30 UG;QW;IM
     Route: 030
     Dates: start: 20000101, end: 20040301
  2. AVONEX [Suspect]
     Indication: MULTIPLE SCLEROSIS
     Dosage: 30 UG;QW;IM
     Route: 030
     Dates: start: 20040301, end: 20040501
  3. BACLOFEN [Concomitant]
  4. VALIUM [Concomitant]
  5. PROVIGIL [Concomitant]
  6. FIORINAL [Concomitant]
  7. COPAXONE [Concomitant]

REACTIONS (18)
  - ACCIDENT [None]
  - ANKLE FRACTURE [None]
  - ASTHENIA [None]
  - BLOOD PRESSURE DECREASED [None]
  - FALL [None]
  - FLUID RETENTION [None]
  - HIP FRACTURE [None]
  - HOT FLUSH [None]
  - HYPERHIDROSIS [None]
  - HYPERSENSITIVITY [None]
  - INFLUENZA LIKE ILLNESS [None]
  - MENOPAUSE [None]
  - MUSCULOSKELETAL STIFFNESS [None]
  - OEDEMA PERIPHERAL [None]
  - PAIN [None]
  - PAIN IN EXTREMITY [None]
  - PYREXIA [None]
  - WALKING AID USER [None]
